FAERS Safety Report 6696442-4 (Version None)
Quarter: 2010Q2

REPORT INFORMATION
  Report Type: 
  Country: None (occurrence: None)
  Receive Date: 20100426
  Receipt Date: 20100412
  Transmission Date: 20101027
  Serious: Yes (Hospitalization, Other)
  Sender: FDA-Public Use
  Company Number: US-BAYER-200943291NA

PATIENT
  Age: 27 Year
  Sex: Female
  Weight: 68 kg

DRUGS (3)
  1. MIRENA [Suspect]
     Indication: CONTRACEPTION
     Dosage: CONTINUOUS
     Route: 015
     Dates: start: 20090824, end: 20091229
  2. CYMBALTA [Concomitant]
     Indication: PREMENSTRUAL SYNDROME
     Dosage: 30-60MG
     Route: 048
     Dates: start: 20090713, end: 20091109
  3. WELLBUTRIN [Concomitant]
     Indication: ANXIETY
     Route: 048
     Dates: start: 20091109, end: 20091201

REACTIONS (8)
  - ANXIETY [None]
  - DEPRESSION [None]
  - DEVICE DISLOCATION [None]
  - FATIGUE [None]
  - INCREASED APPETITE [None]
  - MOOD ALTERED [None]
  - PROCEDURAL PAIN [None]
  - WEIGHT INCREASED [None]
